FAERS Safety Report 7164277-4 (Version None)
Quarter: 2010Q4

REPORT INFORMATION
  Report Type: 
  Country: None (occurrence: None)
  Receive Date: 20101203
  Receipt Date: 20101123
  Transmission Date: 20110411
  Serious: Yes (Hospitalization)
  Sender: FDA-Public Use
  Company Number: 200010680

PATIENT
  Age: 24 Month
  Sex: Female
  Weight: 13.1543 kg

DRUGS (1)
  1. TOPCARE WATERLESS HAND SANITIZER [Suspect]
     Dosage: PRODUCT WAS INGESTED
     Dates: start: 20101117, end: 20101119

REACTIONS (4)
  - LETHARGY [None]
  - PERIPHERAL COLDNESS [None]
  - SKIN DISCOLOURATION [None]
  - SOMNOLENCE [None]
